FAERS Safety Report 19779871 (Version 3)
Quarter: 2022Q2

REPORT INFORMATION
  Report Type: Spontaneous
  Country: US (occurrence: US)
  Receive Date: 20210902
  Receipt Date: 20220420
  Transmission Date: 20220721
  Serious: No
  Sender: FDA-Public Use
  Company Number: US-VERTEX PHARMACEUTICALS-2021-013328

PATIENT
  Sex: Female

DRUGS (3)
  1. TRIKAFTA [Suspect]
     Active Substance: ELEXACAFTOR\IVACAFTOR\TEZACAFTOR
     Indication: Cystic fibrosis
     Dosage: 1-2 ORANGE TAB DAILY, NO BLUE TAB
     Route: 048
     Dates: start: 201912
  2. TRIKAFTA [Suspect]
     Active Substance: ELEXACAFTOR\IVACAFTOR\TEZACAFTOR
     Dosage: 50 MG ELEXA/ 25 MG TEZA/ 37.5 MG IVA AND 75 MG IVA
     Route: 048
     Dates: start: 20211029
  3. TRIKAFTA [Suspect]
     Active Substance: ELEXACAFTOR\IVACAFTOR\TEZACAFTOR
     Dosage: REDUCED DOSE
     Route: 048
     Dates: start: 20220126

REACTIONS (10)
  - Rash [Unknown]
  - Systemic lupus erythematosus [Unknown]
  - Arthralgia [Unknown]
  - Lupus-like syndrome [Unknown]
  - Visual impairment [Unknown]
  - Swelling [Unknown]
  - Periarthritis [Unknown]
  - Abdominal distension [Unknown]
  - Antinuclear antibody positive [Unknown]
  - Histone antibody positive [Unknown]

NARRATIVE: CASE EVENT DATE: 20210101
